FAERS Safety Report 10591072 (Version 1)
Quarter: 2014Q4

REPORT INFORMATION
  Report Type: Spontaneous
  Country: US (occurrence: None)
  Receive Date: 20141110
  Receipt Date: 20141110
  Transmission Date: 20150529
  Serious: Yes (Other)
  Sender: FDA-Public Use
  Company Number: FK201305060

PATIENT
  Age: 20 Year
  Sex: Female
  Weight: 69 kg

DRUGS (3)
  1. NAROPIN [Suspect]
     Active Substance: ROPIVACAINE HYDROCHLORIDE
     Indication: ANAESTHESIA
     Dates: start: 20131119, end: 20131119
  2. LIDOCAINE (LIDOCAINE) [Concomitant]
     Active Substance: LIDOCAINE
  3. FENTANYL (FENTANYL) [Concomitant]
     Active Substance: FENTANYL

REACTIONS (1)
  - Drug ineffective [None]

NARRATIVE: CASE EVENT DATE: 20131119
